FAERS Safety Report 23152797 (Version 1)
Quarter: 2023Q4

REPORT INFORMATION
  Report Type: Spontaneous
  Country: US (occurrence: US)
  Receive Date: 20231107
  Receipt Date: 20231107
  Transmission Date: 20240110
  Serious: No
  Sender: FDA-Public Use
  Company Number: US-BEH-2023165074

PATIENT
  Sex: Female

DRUGS (1)
  1. HIZENTRA [Suspect]
     Active Substance: HUMAN IMMUNOGLOBULIN G
     Dosage: UNK
     Route: 065
     Dates: start: 202310

REACTIONS (4)
  - Vomiting [Unknown]
  - Back pain [Unknown]
  - Intra-abdominal fluid collection [Unknown]
  - Malaise [Unknown]

NARRATIVE: CASE EVENT DATE: 20231001
